FAERS Safety Report 8769671 (Version 1)
Quarter: 2012Q4

REPORT INFORMATION
  Report Type: 
  Country: US (occurrence: US)
  Receive Date: 20120905
  Receipt Date: 20120905
  Transmission Date: 20130627
  Serious: No
  Sender: FDA-Public Use
  Company Number: US-B.I. PHARMACEUTICALS,INC./RIDGEFIELD-2012-BP-21171BP

PATIENT
  Sex: Female

DRUGS (7)
  1. MOBIC [Suspect]
     Indication: OSTEOARTHRITIS
     Dosage: 15 mg
     Route: 048
     Dates: start: 20110629, end: 201208
  2. ZOLOFT [Concomitant]
     Indication: DEPRESSION
     Route: 048
  3. ATENOLOL [Concomitant]
     Indication: HYPERTENSION
     Route: 048
  4. LEVOTHYROXINE [Concomitant]
     Indication: HYPOTHYROIDISM
     Route: 048
  5. WELLBUTRIN [Concomitant]
     Indication: DEPRESSION
     Route: 048
  6. MORPHINE [Concomitant]
     Indication: PAIN
  7. GABAPENTIN [Concomitant]
     Indication: DEPRESSION

REACTIONS (2)
  - Epistaxis [Recovered/Resolved]
  - Platelet count decreased [Unknown]
